FAERS Safety Report 8575650-1 (Version None)
Quarter: 2012Q3

REPORT INFORMATION
  Report Type: 
  Country: None (occurrence: None)
  Receive Date: 20120807
  Receipt Date: 20120802
  Transmission Date: 20120928
  Serious: Yes (Hospitalization)
  Sender: FDA-Public Use
  Company Number: PHHY2012JP031551

PATIENT
  Age: 89 Year
  Sex: Male

DRUGS (4)
  1. AMLODIPINE [Concomitant]
     Dosage: 5 MG, UNK
     Route: 048
  2. EXELON [Suspect]
     Dosage: 9 MG, DAILY
     Route: 062
     Dates: start: 20120403
  3. EXELON [Suspect]
     Indication: DEMENTIA ALZHEIMER'S TYPE
     Dosage: 4.5 MG DAILY
     Route: 062
     Dates: start: 20120309, end: 20120402
  4. SILVINOL [Concomitant]
     Dosage: 10 MG, UNK
     Route: 048

REACTIONS (3)
  - FALL [None]
  - FEMUR FRACTURE [None]
  - AGITATION [None]
